FAERS Safety Report 25151331 (Version 1)
Quarter: 2025Q2

REPORT INFORMATION
  Report Type: Report from Study
  Country: US (occurrence: US)
  Receive Date: 20250402
  Receipt Date: 20250402
  Transmission Date: 20250716
  Serious: Yes (Hospitalization, Other)
  Sender: ALEXION PHARMACEUTICALS
  Company Number: US-AstraZeneca-CH-00836011A

PATIENT

DRUGS (1)
  1. ALBUTEROL\BUDESONIDE [Suspect]
     Active Substance: ALBUTEROL\BUDESONIDE
     Indication: Product used for unknown indication
     Route: 065

REACTIONS (1)
  - Myocardial infarction [Recovering/Resolving]
